FAERS Safety Report 5632982-4 (Version None)
Quarter: 2008Q1

REPORT INFORMATION
  Report Type: 
  Country: None (occurrence: None)
  Receive Date: 20080221
  Receipt Date: 20080213
  Transmission Date: 20080703
  Serious: Yes (Hospitalization)
  Sender: FDA-Public Use
  Company Number: SE-JNJFOC-20080203491

PATIENT
  Sex: Male

DRUGS (2)
  1. IPREN 200 MG [Suspect]
     Route: 048
  2. IPREN 200 MG [Suspect]
     Indication: DRUG USE FOR UNKNOWN INDICATION
     Dosage: A FEW FOR A SHORT PERIOD OF TIME
     Route: 048

REACTIONS (1)
  - GASTRIC ULCER [None]
